FAERS Safety Report 24924411 (Version 1)
Quarter: 2025Q1

REPORT INFORMATION
  Report Type: Spontaneous
  Country: US (occurrence: US)
  Receive Date: 20250204
  Receipt Date: 20250204
  Transmission Date: 20250409
  Serious: No
  Sender: ABBVIE
  Company Number: US-ABBVIE-6115437

PATIENT
  Age: 95 Year
  Sex: Female

DRUGS (1)
  1. BYSTOLIC [Suspect]
     Active Substance: NEBIVOLOL HYDROCHLORIDE
     Indication: Heart rate
     Route: 048

REACTIONS (3)
  - Expired product administered [Unknown]
  - Adverse drug reaction [Unknown]
  - Off label use [Unknown]
